FAERS Safety Report 17542784 (Version 1)
Quarter: 2020Q1

REPORT INFORMATION
  Report Type: Spontaneous
  Country: US (occurrence: US)
  Receive Date: 20200306
  Receipt Date: 20200306
  Transmission Date: 20200409
  Serious: No
  Sender: FDA-Public Use
  Company Number: None

PATIENT
  Age: 65 Year
  Sex: Male

DRUGS (1)
  1. MAVYRET [Suspect]
     Active Substance: GLECAPREVIR\PIBRENTASVIR
     Dosage: ?          OTHER DOSE:100/40MG 3 TABS;?
     Route: 048
     Dates: start: 201912, end: 202001

REACTIONS (1)
  - Hepatic fibrosis [None]

NARRATIVE: CASE EVENT DATE: 20200102
